FAERS Safety Report 4283679-7 (Version None)
Quarter: 2004Q1

REPORT INFORMATION
  Report Type: 
  Country: None (occurrence: None)
  Receive Date: 20040202
  Receipt Date: 20040126
  Transmission Date: 20041129
  Serious: Yes (Hospitalization)
  Sender: FDA-Public Use
  Company Number: US-ROCHE-357343

PATIENT
  Age: 41 Year
  Sex: Male

DRUGS (5)
  1. FUZEON [Suspect]
     Indication: HIV INFECTION
     Route: 058
     Dates: start: 20030415
  2. DAPSONE [Concomitant]
     Indication: HIV INFECTION
     Route: 048
  3. NORVIR [Concomitant]
     Indication: HIV INFECTION
     Route: 048
  4. AGENERASE [Concomitant]
     Indication: HIV INFECTION
     Route: 048
  5. ZITHROMAX [Concomitant]
     Route: 048

REACTIONS (3)
  - BIPOLAR I DISORDER [None]
  - INSOMNIA [None]
  - PERSONALITY DISORDER [None]
